FAERS Safety Report 4325295-4 (Version None)
Quarter: 2004Q1

REPORT INFORMATION
  Report Type: 
  Country: None (occurrence: None)
  Receive Date: 20040326
  Receipt Date: 20040326
  Transmission Date: 20041129
  Serious: No
  Sender: FDA-Public Use
  Company Number: None

PATIENT
  Age: 32 Year
  Sex: Male
  Weight: 138.8007 kg

DRUGS (2)
  1. PROZAC [Suspect]
     Indication: DIZZINESS
     Dosage: 20 MG 1 PER DAY ORAL
     Route: 048
     Dates: start: 20040114, end: 20040119
  2. PROZAC [Suspect]
     Indication: REACTION TO FOOD ADDITIVE
     Dosage: 20 MG 1 PER DAY ORAL
     Route: 048
     Dates: start: 20040114, end: 20040119

REACTIONS (15)
  - AGITATION [None]
  - ANXIETY [None]
  - DEPRESSION [None]
  - DEREALISATION [None]
  - FEAR [None]
  - HOMICIDAL IDEATION [None]
  - HYPERVENTILATION [None]
  - LOSS OF EMPLOYMENT [None]
  - MENTAL DISORDER [None]
  - MIGRAINE [None]
  - MUSCLE TWITCHING [None]
  - NAUSEA [None]
  - NERVOUSNESS [None]
  - POST-TRAUMATIC STRESS DISORDER [None]
  - SUICIDAL IDEATION [None]
